FAERS Safety Report 5629711-7 (Version None)
Quarter: 2008Q1

REPORT INFORMATION
  Report Type: 
  Country: None (occurrence: None)
  Receive Date: 20080214
  Receipt Date: 20080131
  Transmission Date: 20080703
  Serious: Yes (Hospitalization)
  Sender: FDA-Public Use
  Company Number: 2008SU0015

PATIENT
  Age: 71 Year
  Sex: Male

DRUGS (3)
  1. SULAR [Suspect]
     Indication: HYPERTENSION
     Dosage: 20 MG QD, PO
     Route: 048
  2. LISINOPRIL [Concomitant]
  3. FOSOMAX [Concomitant]

REACTIONS (2)
  - ATRIAL FIBRILLATION [None]
  - CORONARY ARTERY OCCLUSION [None]
